FAERS Safety Report 14695936 (Version 1)
Quarter: 2018Q1

REPORT INFORMATION
  Report Type: Spontaneous
  Country: US (occurrence: US)
  Receive Date: 20180329
  Receipt Date: 20180329
  Transmission Date: 20180509
  Serious: Yes (Other)
  Sender: FDA-Public Use
  Company Number: US-TEVA-2018-US-873976

PATIENT
  Sex: Female

DRUGS (1)
  1. KETOCONAZOLE. [Suspect]
     Active Substance: KETOCONAZOLE
     Indication: SKIN DISORDER

REACTIONS (5)
  - Application site burn [Unknown]
  - Burning sensation [Unknown]
  - Erythema [Unknown]
  - Skin exfoliation [Unknown]
  - Skin reaction [Unknown]
